FAERS Safety Report 7403640-0 (Version None)
Quarter: 2011Q2

REPORT INFORMATION
  Report Type: 
  Country: None (occurrence: None)
  Receive Date: 20110408
  Receipt Date: 20110328
  Transmission Date: 20111010
  Serious: Yes (Hospitalization, Other)
  Sender: FDA-Public Use
  Company Number: PHHY2010TW77156

PATIENT
  Sex: Male

DRUGS (1)
  1. GLEEVEC [Suspect]
     Indication: GASTROINTESTINAL STROMAL TUMOUR
     Dosage: 400 MG DAILY
     Route: 048

REACTIONS (7)
  - VOMITING [None]
  - DIARRHOEA [None]
  - BRAIN NEOPLASM [None]
  - URINARY TRACT INFECTION [None]
  - ASTHENIA [None]
  - NEOPLASM MALIGNANT [None]
  - LUNG ADENOCARCINOMA METASTATIC [None]
